FAERS Safety Report 7068075-1 (Version None)
Quarter: 2010Q4

REPORT INFORMATION
  Report Type: 
  Country: None (occurrence: None)
  Receive Date: 20101027
  Receipt Date: 20101027
  Transmission Date: 20110411
  Serious: Yes (Other)
  Sender: FDA-Public Use
  Company Number: None

PATIENT
  Age: 60 Year
  Sex: Female
  Weight: 113.3993 kg

DRUGS (2)
  1. METHOTREXATE INJ 50 MG/2ML SANDOZ [Suspect]
     Indication: POLYMYALGIA RHEUMATICA
     Dosage: 0.5 ML WEEKLY UNK
     Dates: start: 20100528, end: 20100618
  2. METHOTREXATE INJ 50 MG/2ML SANDOZ [Suspect]
     Indication: POLYMYALGIA RHEUMATICA
     Dosage: 0.5 ML WEEKLY UNK
     Dates: start: 20101020, end: 20101026

REACTIONS (5)
  - BRONCHITIS [None]
  - INFECTION [None]
  - NAUSEA [None]
  - PRODUCT QUALITY ISSUE [None]
  - PRODUCT SUBSTITUTION ISSUE [None]
